FAERS Safety Report 13005984 (Version 9)
Quarter: 2021Q4

REPORT INFORMATION
  Report Type: Spontaneous
  Country: US (occurrence: US)
  Receive Date: 20161207
  Receipt Date: 20211202
  Transmission Date: 20220303
  Serious: Yes (Other)
  Sender: FDA-Public Use
  Company Number: US-PFIZER INC-2016554946

PATIENT
  Age: 80 Year
  Sex: Female
  Weight: 75.75 kg

DRUGS (4)
  1. DILANTIN [Suspect]
     Active Substance: PHENYTOIN
     Indication: Seizure
     Dosage: 100 MG, 2X/DAY (IN THE MORNING AND IN THE EVENING)
     Route: 048
  2. DILANTIN [Suspect]
     Active Substance: PHENYTOIN
     Indication: Epilepsy
  3. LYRICA [Concomitant]
     Active Substance: PREGABALIN
     Indication: Neuropathy peripheral
     Dosage: 50 MG, 2X/DAY
     Route: 048
     Dates: start: 201611
  4. DILANTIN INFATABS [Concomitant]
     Active Substance: PHENYTOIN
     Dosage: 50 MG, 1X/DAY (BEFORE BED)
     Route: 048

REACTIONS (6)
  - Brain injury [Unknown]
  - Gait disturbance [Not Recovered/Not Resolved]
  - Coordination abnormal [Recovering/Resolving]
  - Central nervous system lesion [Unknown]
  - Tremor [Not Recovered/Not Resolved]
  - Body height decreased [Unknown]

NARRATIVE: CASE EVENT DATE: 20140101
